FAERS Safety Report 5577612-5 (Version None)
Quarter: 2007Q4

REPORT INFORMATION
  Report Type: 
  Country: None (occurrence: None)
  Receive Date: 20071231
  Receipt Date: 20071221
  Transmission Date: 20080405
  Serious: Yes (Hospitalization)
  Sender: FDA-Public Use
  Company Number: PHBS2007JP21405

PATIENT
  Age: 2 Day
  Sex: Female
  Weight: 3.536 kg

DRUGS (4)
  1. TOFRANIL [Suspect]
     Dosage: MATERNAL DOSE 25 MG TID
     Route: 064
  2. RESLIN [Suspect]
     Dosage: MATERNAL DOSE 25 MG TID
     Route: 064
  3. AMOXAPINE [Suspect]
     Dosage: MATERNAL DOSE 25 MG TID
     Route: 064
  4. SOLANAX [Suspect]
     Dosage: MATERNAL DOSE 0.4 MG ONCE DAILY
     Route: 064

REACTIONS (15)
  - ASPARTATE AMINOTRANSFERASE INCREASED [None]
  - BLOOD LACTATE DEHYDROGENASE INCREASED [None]
  - DECREASED ACTIVITY [None]
  - DRUG EXPOSURE DURING PREGNANCY [None]
  - DRUG WITHDRAWAL SYNDROME NEONATAL [None]
  - FOETAL DISTRESS SYNDROME [None]
  - HYPERTONIA NEONATAL [None]
  - IRRITABILITY [None]
  - LEUKOCYTOSIS [None]
  - MECONIUM STAIN [None]
  - NEONATAL DISORDER [None]
  - POOR SUCKING REFLEX [None]
  - PYREXIA [None]
  - THROMBOCYTHAEMIA [None]
  - TREMOR NEONATAL [None]
